FAERS Safety Report 10879826 (Version 2)
Quarter: 2015Q2

REPORT INFORMATION
  Report Type: Spontaneous
  Country: US (occurrence: US)
  Receive Date: 20150302
  Receipt Date: 20150421
  Transmission Date: 20150821
  Serious: No
  Sender: FDA-Public Use
  Company Number: US-PFIZER INC-2015069319

PATIENT
  Age: 56 Year
  Sex: Female

DRUGS (2)
  1. LYRICA [Suspect]
     Active Substance: PREGABALIN
     Dosage: 25MG IN THE MORNING AND 75MG IN THE EVENING
  2. LYRICA [Suspect]
     Active Substance: PREGABALIN
     Dosage: 25MG MORNING, 25-50MG AFTERNOON, 50-75MG EARLY EVENING, AND 75MG LATE EVENING

REACTIONS (6)
  - Strabismus [Unknown]
  - Decreased activity [Unknown]
  - Dizziness [Unknown]
  - Speech disorder [Unknown]
  - Thinking abnormal [Unknown]
  - Drug ineffective [Unknown]
